FAERS Safety Report 18742577 (Version 1)
Quarter: 2021Q1

REPORT INFORMATION
  Report Type: Spontaneous
  Country: US (occurrence: US)
  Receive Date: 20210114
  Receipt Date: 20210114
  Transmission Date: 20210419
  Serious: Yes (Hospitalization, Other)
  Sender: FDA-Public Use
  Company Number: US-ALXN-A202017584

PATIENT
  Age: 3 Year
  Sex: Male

DRUGS (4)
  1. STRENSIQ [Suspect]
     Active Substance: ASFOTASE ALFA
     Indication: HYPOPHOSPHATASIA
     Dosage: 2 MG/KG, TIW
     Route: 065
  2. STRENSIQ [Suspect]
     Active Substance: ASFOTASE ALFA
     Dosage: 1.5 MG/KG, SIX TIMES/WEEK
     Route: 065
     Dates: start: 202011
  3. STRENSIQ [Suspect]
     Active Substance: ASFOTASE ALFA
     Dosage: 3 MG/KG, TIW
     Route: 065
  4. STRENSIQ [Suspect]
     Active Substance: ASFOTASE ALFA
     Dosage: 2.5 MG/KG, TIW
     Route: 065

REACTIONS (8)
  - Condition aggravated [Unknown]
  - Therapeutic product effect decreased [Unknown]
  - Femur fracture [Unknown]
  - Gait inability [Unknown]
  - Blood alkaline phosphatase abnormal [Unknown]
  - Subcutaneous drug absorption impaired [Unknown]
  - Dysstasia [Unknown]
  - X-ray abnormal [Unknown]

NARRATIVE: CASE EVENT DATE: 2020
